FAERS Safety Report 22184524 (Version 1)
Quarter: 2023Q2

REPORT INFORMATION
  Report Type: Spontaneous
  Country: CN (occurrence: CN)
  Receive Date: 20230407
  Receipt Date: 20230407
  Transmission Date: 20230721
  Serious: Yes (Hospitalization)
  Sender: FDA-Public Use
  Company Number: CN-SANOFI-01556191

PATIENT
  Age: 70 Year
  Sex: Female

DRUGS (9)
  1. PRALUENT [Suspect]
     Active Substance: ALIROCUMAB
     Indication: Hyperlipidaemia
     Dosage: UNK
     Dates: start: 202208
  2. PRALUENT [Suspect]
     Active Substance: ALIROCUMAB
     Dosage: UNK, QOW
     Dates: start: 20221010
  3. EUTHYROX [Concomitant]
     Active Substance: LEVOTHYROXINE SODIUM
     Indication: Hypothyroidism
     Dosage: UNK
  4. ISOSORBIDE MONONITRATE [Concomitant]
     Active Substance: ISOSORBIDE MONONITRATE
     Dosage: UNK
  5. NICORANDIL [Concomitant]
     Active Substance: NICORANDIL
     Dosage: UNK
  6. BISOPROLOL [Concomitant]
     Active Substance: BISOPROLOL
     Indication: Cardiac disorder
     Dosage: UNK
  7. METFORMIN [Concomitant]
     Active Substance: METFORMIN HYDROCHLORIDE
     Dosage: UNK
     Route: 048
  8. INSULIN ASPART [Concomitant]
     Active Substance: INSULIN ASPART
     Indication: Diabetes mellitus
     Dosage: INSULIN ASPART 30 (ONCE BEFORE MEALS IN THE MORNING AND EVENING RESPECTIVELY)
  9. INDOBUFEN [Concomitant]
     Active Substance: INDOBUFEN
     Indication: Platelet aggregation inhibition
     Dosage: UNK

REACTIONS (7)
  - Hypotension [Unknown]
  - Palpitations [Unknown]
  - Chest discomfort [Unknown]
  - Pain in extremity [Unknown]
  - Weight decreased [Unknown]
  - Muscle discomfort [Unknown]
  - Low density lipoprotein increased [Unknown]

NARRATIVE: CASE EVENT DATE: 20221001
